FAERS Safety Report 15248229 (Version 1)
Quarter: 2018Q3

REPORT INFORMATION
  Report Type: Spontaneous
  Country: US (occurrence: US)
  Receive Date: 20180715
  Receipt Date: 20180715
  Transmission Date: 20181010
  Serious: Yes (Other)
  Sender: FDA-Public Use
  Company Number: None

PATIENT
  Age: 20 Year
  Sex: Female
  Weight: 69.3 kg

DRUGS (1)
  1. ALLERGY RELIEF (CETIRIZINE HYDROCHLORIDE) [Suspect]
     Active Substance: CETIRIZINE HYDROCHLORIDE
     Indication: HYPERSENSITIVITY
     Dosage: ?          QUANTITY:1 TABLET(S);?
     Route: 048
     Dates: start: 20140101, end: 20180713

REACTIONS (6)
  - Rash [None]
  - Drug ineffective [None]
  - Hypersensitivity [None]
  - Pruritus [None]
  - Urticaria [None]
  - Insomnia [None]

NARRATIVE: CASE EVENT DATE: 20180712
